FAERS Safety Report 9970290 (Version 2)
Quarter: 2014Q2

REPORT INFORMATION
  Report Type: Spontaneous
  Country: US (occurrence: None)
  Receive Date: 20140304
  Receipt Date: 20140501
  Transmission Date: 20141212
  Serious: Yes (Hospitalization, Other)
  Sender: FDA-Public Use
  Company Number: 2014-US-002254

PATIENT
  Age: 62 Year
  Sex: Female

DRUGS (5)
  1. XYREM (SODIUM OXYBATE) ORAL SOLUTION, 500MG/ML [Suspect]
     Indication: NARCOLEPSY
     Route: 048
  2. XYREM (SODIUM OXYBATE) ORAL SOLUTION, 500MG/ML [Suspect]
     Indication: NARCOLEPSY
     Route: 048
  3. XYREM (SODIUM OXYBATE) ORAL SOLUTION, 500MG/ML [Suspect]
     Indication: NARCOLEPSY
     Route: 048
  4. NUVIGIL (AMODAFINIL) [Concomitant]
  5. DEXEDRINE SPANSULE (DEXAMFETAMINE SULFATE) [Concomitant]

REACTIONS (6)
  - Intestinal obstruction [None]
  - Abdominal adhesions [None]
  - Intestinal operation [None]
  - Nerve compression [None]
  - Intestinal perforation [None]
  - Hyperhidrosis [None]
